FAERS Safety Report 9203509 (Version 2)
Quarter: 2013Q2

REPORT INFORMATION
  Report Type: Spontaneous
  Country: US (occurrence: US)
  Receive Date: 20130402
  Receipt Date: 20130606
  Transmission Date: 20140414
  Serious: No
  Sender: FDA-Public Use
  Company Number: US-PFIZER INC-2013103126

PATIENT
  Age: 23 Year
  Sex: Female
  Weight: 74.4 kg

DRUGS (4)
  1. PRISTIQ [Suspect]
     Indication: DEPRESSION
     Dosage: 50MG DAILY
     Route: 048
     Dates: start: 20100102, end: 20111108
  2. PRISTIQ [Suspect]
     Dosage: 100MG DAILY
     Route: 048
     Dates: start: 20111109, end: 201303
  3. PRISTIQ [Suspect]
     Dosage: 50MG DAILY
     Route: 048
     Dates: start: 201303
  4. VYVANSE [Concomitant]
     Indication: ATTENTION DEFICIT/HYPERACTIVITY DISORDER
     Dosage: 60MG DAILY

REACTIONS (3)
  - Activities of daily living impaired [Recovered/Resolved]
  - Dizziness [Recovered/Resolved]
  - Nausea [Unknown]
